FAERS Safety Report 15464550 (Version 1)
Quarter: 2018Q4

REPORT INFORMATION
  Report Type: Report from Study
  Country: BR (occurrence: BR)
  Receive Date: 20181004
  Receipt Date: 20181004
  Transmission Date: 20190204
  Serious: Yes (Death, Other)
  Sender: FDA-Public Use
  Company Number: BR-UCBSA-2018043756

PATIENT
  Age: 84 Year
  Sex: Female

DRUGS (1)
  1. LEVETIRACETAM. [Suspect]
     Active Substance: LEVETIRACETAM
     Indication: EPILEPSY
     Dosage: 250 MG, 2X/DAY (BID)
     Route: 048
     Dates: start: 201806, end: 20180817

REACTIONS (2)
  - Dementia Alzheimer^s type [Unknown]
  - Pneumonia [Fatal]

NARRATIVE: CASE EVENT DATE: 2018
